FAERS Safety Report 16877889 (Version 1)
Quarter: 2019Q4

REPORT INFORMATION
  Report Type: Report from Study
  Country: US (occurrence: US)
  Receive Date: 20191002
  Receipt Date: 20191002
  Transmission Date: 20200122
  Serious: Yes (Hospitalization, Other)
  Sender: FDA-Public Use
  Company Number: US-GILEAD-2019-0431076

PATIENT
  Age: 5 Year
  Sex: Female

DRUGS (6)
  1. TOBRAMYCIN. [Concomitant]
     Active Substance: TOBRAMYCIN
  2. ALBUTEROL SULFATE. [Concomitant]
     Active Substance: ALBUTEROL SULFATE
  3. AZTREONAM LYSINE [Suspect]
     Active Substance: AZTREONAM LYSINE
     Indication: CYSTIC FIBROSIS
     Dosage: 75 MG, TID, FOR 28 DAYS ON AND 28 DAYS OFF
     Dates: start: 20190716
  4. BUDESONIDE. [Concomitant]
     Active Substance: BUDESONIDE
  5. RANITIDINE HYDROCHLORIDE. [Concomitant]
     Active Substance: RANITIDINE HYDROCHLORIDE
  6. CYPROHEPTADINE HYDROCHLORIDE. [Concomitant]
     Active Substance: CYPROHEPTADINE HYDROCHLORIDE

REACTIONS (2)
  - Feeding tube user [Unknown]
  - Unevaluable event [Unknown]
